FAERS Safety Report 10405206 (Version 1)
Quarter: 2014Q3

REPORT INFORMATION
  Report Type: Spontaneous
  Country: US (occurrence: None)
  Receive Date: 20140820
  Receipt Date: 20140820
  Transmission Date: 20150326
  Serious: Yes (Disabling)
  Sender: FDA-Public Use
  Company Number: FK201403326

PATIENT

DRUGS (2)
  1. LIDOCAINE. [Suspect]
     Active Substance: LIDOCAINE
     Indication: PERIOPERATIVE ANALGESIA
  2. BUPIVACAINE [Suspect]
     Active Substance: BUPIVACAINE
     Indication: PERIOPERATIVE ANALGESIA

REACTIONS (1)
  - Generalised tonic-clonic seizure [None]
